FAERS Safety Report 25845506 (Version 2)
Quarter: 2025Q4

REPORT INFORMATION
  Report Type: Spontaneous
  Country: US (occurrence: US)
  Receive Date: 20250925
  Receipt Date: 20251030
  Transmission Date: 20260117
  Serious: No
  Sender: TOLMAR
  Company Number: US-Tolmar-TLM-2025-06797

PATIENT

DRUGS (2)
  1. ELIGARD [Suspect]
     Active Substance: LEUPROLIDE ACETATE
     Indication: Prostate cancer
     Dosage: SERIAL: 3118794069461.?GTIN: 00362935227106.?MAR-2026; FEB-2026; FEB-2026?DOSE NOT ADMINISTERED
     Route: 065
  2. DEVICE [Suspect]
     Active Substance: DEVICE
     Indication: Prostate cancer
     Dosage: SERIAL: 3118794069461.?GTIN: 00362935227106.?MAR-2026; FEB-2026; FEB-2026

REACTIONS (5)
  - Intercepted product preparation error [Unknown]
  - Product preparation error [Unknown]
  - Device leakage [Unknown]
  - Wrong technique in product usage process [Unknown]
  - Product quality issue [Unknown]
